FAERS Safety Report 25737282 (Version 1)
Quarter: 2025Q3

REPORT INFORMATION
  Report Type: Spontaneous
  Country: US (occurrence: US)
  Receive Date: 20250828
  Receipt Date: 20250828
  Transmission Date: 20251021
  Serious: Yes (Other)
  Sender: COOPERSURGICAL
  Company Number: US-COOPERSURGICAL, INC.-2025CPS006192

PATIENT
  Age: 49 Year
  Sex: Female
  Weight: 58.957 kg

DRUGS (5)
  1. PARAGARD T 380A [Suspect]
     Active Substance: COPPER
     Route: 015
     Dates: start: 20090101
  2. XANAX [Concomitant]
     Active Substance: ALPRAZOLAM
     Dates: start: 202105, end: 202209
  3. BUSPIRONE [Concomitant]
     Active Substance: BUSPIRONE HYDROCHLORIDE
     Dates: start: 202108
  4. VALTREX [Concomitant]
     Active Substance: VALACYCLOVIR HYDROCHLORIDE
     Dates: start: 2007
  5. EPIPEN [Concomitant]
     Active Substance: EPINEPHRINE
     Dates: start: 2014

REACTIONS (11)
  - Surgery [Recovered/Resolved]
  - Cervical dysplasia [Unknown]
  - Device breakage [Not Recovered/Not Resolved]
  - Foreign body in reproductive tract [Not Recovered/Not Resolved]
  - Complication of device removal [Not Recovered/Not Resolved]
  - Uterine perforation [Unknown]
  - Uterine cervix stenosis [Unknown]
  - Procedural pain [Recovered/Resolved]
  - Emotional distress [Unknown]
  - Off label use [Unknown]
  - Device use issue [Unknown]

NARRATIVE: CASE EVENT DATE: 20191211
